FAERS Safety Report 14526999 (Version 1)
Quarter: 2018Q1

REPORT INFORMATION
  Report Type: Spontaneous
  Country: US (occurrence: US)
  Receive Date: 20180213
  Receipt Date: 20180213
  Transmission Date: 20180509
  Serious: Yes (Hospitalization)
  Sender: FDA-Public Use
  Company Number: US-JNJFOC-20180214228

PATIENT
  Age: 52 Year
  Sex: Male

DRUGS (1)
  1. INVOKANA [Suspect]
     Active Substance: CANAGLIFLOZIN
     Indication: DIABETES MELLITUS INADEQUATE CONTROL
     Dosage: IN VARYING DOSES OF 100 MG AND 300 MG
     Route: 048
     Dates: start: 201406, end: 201612

REACTIONS (3)
  - Diabetic foot [Not Recovered/Not Resolved]
  - Metatarsal excision [Unknown]
  - Osteomyelitis [Recovering/Resolving]

NARRATIVE: CASE EVENT DATE: 201612
